FAERS Safety Report 7353578-2 (Version None)
Quarter: 2011Q1

REPORT INFORMATION
  Report Type: 
  Country: None (occurrence: None)
  Receive Date: 20110315
  Receipt Date: 20110302
  Transmission Date: 20110831
  Serious: Yes (Other)
  Sender: FDA-Public Use
  Company Number: TR-MYLANLABS-2011S1004380

PATIENT
  Age: 73 Year
  Sex: Male

DRUGS (1)
  1. CLARITHROMYCIN [Suspect]
     Indication: LOWER RESPIRATORY TRACT INFECTION
     Dosage: PULSE IV
     Route: 042

REACTIONS (3)
  - VENOUS THROMBOSIS [None]
  - DERMATITIS BULLOUS [None]
  - INJECTION SITE REACTION [None]
